FAERS Safety Report 15738294 (Version 2)
Quarter: 2019Q1

REPORT INFORMATION
  Report Type: Spontaneous
  Country: US (occurrence: US)
  Receive Date: 20181219
  Receipt Date: 20190204
  Transmission Date: 20190417
  Serious: Yes (Death, Life-Threatening, Hospitalization, Disabling, Other)
  Sender: FDA-Public Use
  Company Number: US-009507513-1812USA007776

PATIENT
  Age: 74 Year
  Sex: Male

DRUGS (4)
  1. PEMETREXED DISODIUM [Suspect]
     Active Substance: PEMETREXED DISODIUM
     Indication: LUNG NEOPLASM MALIGNANT
     Dosage: UNK
  2. PLATINUM [Suspect]
     Active Substance: PLATINUM
     Indication: LUNG NEOPLASM MALIGNANT
  3. KEYTRUDA [Suspect]
     Active Substance: PEMBROLIZUMAB
     Indication: LUNG NEOPLASM MALIGNANT
     Dosage: UNK
     Route: 042
     Dates: start: 201807, end: 20181023
  4. PLATINUM [Suspect]
     Active Substance: PLATINUM
     Indication: CHEMOTHERAPY
     Dosage: UNK

REACTIONS (3)
  - Malignant neoplasm progression [Not Recovered/Not Resolved]
  - Death [Fatal]
  - Pneumonitis [Not Recovered/Not Resolved]

NARRATIVE: CASE EVENT DATE: 201810
